FAERS Safety Report 17276019 (Version 1)
Quarter: 2020Q1

REPORT INFORMATION
  Report Type: Spontaneous
  Country: US (occurrence: US)
  Receive Date: 20200116
  Receipt Date: 20200116
  Transmission Date: 20200409
  Serious: Yes (Hospitalization, Other)
  Sender: FDA-Public Use
  Company Number: US-ACCORD-169579

PATIENT
  Age: 55 Year
  Sex: Female

DRUGS (1)
  1. TRAZODONE [Suspect]
     Active Substance: TRAZODONE HYDROCHLORIDE
     Dosage: 2000-4500 MILLIGRAMS

REACTIONS (14)
  - Cardiogenic shock [Recovered/Resolved]
  - Myocardial infarction [Recovered/Resolved]
  - Respiratory arrest [Recovered/Resolved]
  - Generalised tonic-clonic seizure [Recovered/Resolved]
  - Bradyarrhythmia [Recovered/Resolved]
  - Pneumonia aspiration [Recovered/Resolved]
  - Hypertension [Unknown]
  - Intentional overdose [Unknown]
  - Unresponsive to stimuli [Recovered/Resolved]
  - Electrocardiogram QT prolonged [Recovered/Resolved]
  - Hypokalaemia [Recovered/Resolved]
  - Suicide attempt [Unknown]
  - Tachycardia [Recovered/Resolved]
  - Mental disorder [Recovered/Resolved]
